FAERS Safety Report 5048713-5 (Version None)
Quarter: 2006Q3

REPORT INFORMATION
  Report Type: 
  Country: None (occurrence: None)
  Receive Date: 20060705
  Receipt Date: 20060622
  Transmission Date: 20061208
  Serious: Yes (Hospitalization, Other)
  Sender: FDA-Public Use
  Company Number: HQWYE348823JUN06

PATIENT
  Age: 48 Year
  Sex: Male

DRUGS (10)
  1. RAPAMUNE [Suspect]
     Indication: PROPHYLAXIS AGAINST TRANSPLANT REJECTION
     Dosage: 13 UNITS NOT PROVIDED/DAILY ORAL
     Route: 048
     Dates: start: 20060503, end: 20060608
  2. MYCOPHENOLATE MOFETIL [Concomitant]
  3. PREDNISONE TAB [Concomitant]
  4. BACTRIM [Concomitant]
  5. VALTREX [Concomitant]
  6. NISTATIN (NYSTATIN) [Concomitant]
  7. PANTOPRAZOLE SODIUM [Concomitant]
  8. NIFEDIPINE [Concomitant]
  9. IRBESARTAN [Concomitant]
  10. PRAZOSIN GITS [Concomitant]

REACTIONS (1)
  - INTRA-ABDOMINAL HAEMORRHAGE [None]
